FAERS Safety Report 4832717-9 (Version None)
Quarter: 2005Q4

REPORT INFORMATION
  Report Type: 
  Country: None (occurrence: None)
  Receive Date: 20051121
  Receipt Date: 20051108
  Transmission Date: 20060501
  Serious: Yes (Other)
  Sender: FDA-Public Use
  Company Number: 2005GB02203

PATIENT

DRUGS (2)
  1. PROPOFOL [Suspect]
     Indication: INDUCTION OF ANAESTHESIA
     Route: 042
  2. LIDOCAINE [Interacting]
     Indication: INDUCTION OF ANAESTHESIA
     Route: 042

REACTIONS (2)
  - BRONCHOSPASM [None]
  - DRUG INTERACTION [None]
